FAERS Safety Report 15980440 (Version 6)
Quarter: 2020Q3

REPORT INFORMATION
  Report Type: Report from Study
  Country: ES (occurrence: ES)
  Receive Date: 20190219
  Receipt Date: 20190604
  Transmission Date: 20201105
  Serious: Yes (Other)
  Sender: FDA-Public Use
  Company Number: ES-PFIZER INC-2018477538

PATIENT
  Age: 45 Year
  Sex: Female
  Weight: 57 kg

DRUGS (6)
  1. TALAZOPARIB. [Suspect]
     Active Substance: TALAZOPARIB
     Indication: BREAST CANCER
     Dosage: 1 MG, 1X/DAY
     Dates: start: 20181102, end: 20181123
  2. TALAZOPARIB. [Suspect]
     Active Substance: TALAZOPARIB
     Dosage: 0.5 MG/ 24 HOURS
     Dates: start: 20190104, end: 20190222
  3. TALAZOPARIB. [Suspect]
     Active Substance: TALAZOPARIB
     Dosage: UNK
     Dates: start: 20190315
  4. IDEOS UNIDIA [Concomitant]
     Active Substance: CALCIUM CARBONATE\CHOLECALCIFEROL
     Dosage: 1000 MG/880 IU EVERY 24H
  5. XGEVA [Concomitant]
     Active Substance: DENOSUMAB
     Dosage: 120 MG EVERY 24H
  6. TALAZOPARIB. [Suspect]
     Active Substance: TALAZOPARIB
     Dosage: 0.75 MG/24 HOURS
     Dates: start: 20181214

REACTIONS (3)
  - Haematotoxicity [Not Recovered/Not Resolved]
  - Neutropenia [Recovered/Resolved]
  - Thrombocytopenia [Recovered/Resolved]

NARRATIVE: CASE EVENT DATE: 20181123
